FAERS Safety Report 6891845-7 (Version None)
Quarter: 2010Q3

REPORT INFORMATION
  Report Type: 
  Country: None (occurrence: None)
  Receive Date: 20100731
  Receipt Date: 20080105
  Transmission Date: 20110219
  Serious: No
  Sender: FDA-Public Use
  Company Number: US-PFIZER INC-2007098390

PATIENT
  Sex: Female
  Weight: 75 kg

DRUGS (6)
  1. NORVASC [Suspect]
     Indication: HYPERTENSION
     Dates: end: 20071119
  2. AMLODIPINE [Suspect]
     Indication: HYPERTENSION
     Dates: start: 20070901
  3. LANOXIN [Concomitant]
  4. VISKEN [Concomitant]
  5. COZAAR [Concomitant]
  6. LIPITOR [Concomitant]

REACTIONS (5)
  - DIZZINESS [None]
  - DRY EYE [None]
  - HEAD DISCOMFORT [None]
  - HEADACHE [None]
  - INFLUENZA [None]
